FAERS Safety Report 5104029-X (Version None)
Quarter: 2006Q3

REPORT INFORMATION
  Report Type: 
  Country: None (occurrence: None)
  Receive Date: 20060911
  Receipt Date: 20060829
  Transmission Date: 20061208
  Serious: Yes (Hospitalization)
  Sender: FDA-Public Use
  Company Number: 2006105100

PATIENT
  Age: 95 Year
  Sex: Female
  Weight: 50 kg

DRUGS (8)
  1. ALDACTONE [Suspect]
     Indication: DRUG USE FOR UNKNOWN INDICATION
     Dosage: 25 MG (EVERY DAY), ORAL
     Route: 048
  2. CLONAZEPAM [Suspect]
     Indication: DRUG USE FOR UNKNOWN INDICATION
     Dosage: 2DF (EVERY DAY), ORAL
     Route: 048
     Dates: end: 20060504
  3. LASIX [Suspect]
     Indication: DRUG USE FOR UNKNOWN INDICATION
     Dosage: 40 MG (EVERY DAY), ORAL
     Route: 048
     Dates: end: 20060504
  4. STABLON            (TIANEPTINE) [Suspect]
     Indication: DRUG USE FOR UNKNOWN INDICATION
     Dosage: 25 MG (EVERY DAY), ORAL
     Route: 048
     Dates: end: 20060504
  5. RISPERDAL [Suspect]
     Indication: DRUG USE FOR UNKNOWN INDICATION
     Dosage: 0.5 MG (EVERY DAY), ORAL
     Route: 048
  6. OMEPRAZOLE [Suspect]
     Indication: DRUG USE FOR UNKNOWN INDICATION
     Dosage: 40 MG (EVERY DAY), ORAL
     Route: 048
  7. ASPIRIN [Concomitant]
  8. CORDARONE [Concomitant]

REACTIONS (5)
  - ANOREXIA [None]
  - DYSPHAGIA [None]
  - FUNGAL INFECTION [None]
  - HYPONATRAEMIA [None]
  - PAIN [None]
